FAERS Safety Report 6356007-0 (Version None)
Quarter: 2009Q3

REPORT INFORMATION
  Report Type: 
  Country: None (occurrence: None)
  Receive Date: 20090915
  Receipt Date: 20090904
  Transmission Date: 20100115
  Serious: Yes (Hospitalization)
  Sender: FDA-Public Use
  Company Number: JP-NOVOPROD-290099

PATIENT
  Sex: Female
  Weight: 44 kg

DRUGS (4)
  1. NOVORAPID CHU PENFILL [Suspect]
     Indication: DIABETES MELLITUS
     Dosage: UNKNOWN
     Route: 058
     Dates: end: 20090731
  2. LANTUS [Suspect]
     Indication: DIABETES MELLITUS
     Route: 058
     Dates: end: 20090731
  3. PROPYLTHIOURACIL [Suspect]
     Indication: HYPERTHYROIDISM
     Route: 048
  4. FERROMIA                           /00023516/ [Suspect]
     Indication: IRON DEFICIENCY ANAEMIA
     Route: 048
     Dates: end: 20090731

REACTIONS (1)
  - LARYNGEAL OEDEMA [None]
